FAERS Safety Report 17802194 (Version 1)
Quarter: 2020Q2

REPORT INFORMATION
  Report Type: Spontaneous
  Country: US (occurrence: US)
  Receive Date: 20200518
  Receipt Date: 20200518
  Transmission Date: 20200714
  Serious: Yes (Hospitalization, Other)
  Sender: FDA-Public Use
  Company Number: None

PATIENT
  Age: 35 Year
  Sex: Female
  Weight: 46.35 kg

DRUGS (1)
  1. METRONIDAZOLE FLAGYL [Suspect]
     Active Substance: METRONIDAZOLE
     Indication: BACTERIAL VAGINOSIS
     Dosage: ?          QUANTITY:2 CAPSULE(S);?
     Route: 048
     Dates: start: 20200409, end: 20200415

REACTIONS (12)
  - Muscle spasms [None]
  - Gastrointestinal disorder [None]
  - Panic attack [None]
  - Pain in extremity [None]
  - Flatulence [None]
  - Fear [None]
  - Feeling abnormal [None]
  - Anxiety [None]
  - Dizziness [None]
  - Headache [None]
  - Palpitations [None]
  - Tongue discolouration [None]

NARRATIVE: CASE EVENT DATE: 20200413
